FAERS Safety Report 10552746 (Version 1)
Quarter: 2014Q4

REPORT INFORMATION
  Report Type: Spontaneous
  Country: IT (occurrence: IT)
  Receive Date: 20141029
  Receipt Date: 20141029
  Transmission Date: 20150529
  Serious: Yes (Life-Threatening)
  Sender: FDA-Public Use
  Company Number: IT-WATSON-2014-23015

PATIENT
  Age: 27 Year
  Sex: Female

DRUGS (1)
  1. OXACILLIN SODIUM (WATSON LABORATORIES) [Suspect]
     Active Substance: OXACILLIN SODIUM
     Indication: EVIDENCE BASED TREATMENT
     Dosage: UNKNOWN
     Route: 065

REACTIONS (1)
  - Histiocytosis haematophagic [Recovered/Resolved]
